FAERS Safety Report 18155758 (Version 1)
Quarter: 2020Q3

REPORT INFORMATION
  Report Type: Report from Study
  Country: None (occurrence: CO)
  Receive Date: 20200817
  Receipt Date: 20200817
  Transmission Date: 20201103
  Serious: Yes (Death)
  Sender: FDA-Public Use
  Company Number: CO-ABBVIE-20K-036-3525969-00

PATIENT
  Age: 70 Year
  Sex: Female
  Weight: 54 kg

DRUGS (1)
  1. IMBRUVICA [Suspect]
     Active Substance: IBRUTINIB
     Indication: CHRONIC LYMPHOCYTIC LEUKAEMIA
     Route: 048
     Dates: start: 20181228, end: 201903

REACTIONS (1)
  - Death [Fatal]

NARRATIVE: CASE EVENT DATE: 20200805
